FAERS Safety Report 7592120-8 (Version None)
Quarter: 2011Q3

REPORT INFORMATION
  Report Type: 
  Country: None (occurrence: None)
  Receive Date: 20110706
  Receipt Date: 20110627
  Transmission Date: 20111222
  Serious: Yes (Hospitalization, Other)
  Sender: FDA-Public Use
  Company Number: US-BAYER-2011-055461

PATIENT
  Age: 35 Year
  Sex: Female

DRUGS (3)
  1. MIRENA [Suspect]
     Indication: CONTRACEPTION
     Dosage: 20 ?G/D, CONT
     Route: 015
     Dates: start: 20080201, end: 20110323
  2. ANTI-ACNE PREPARATIONS FOR TOPICAL USE [Concomitant]
     Indication: ACNE
     Dosage: UNK UNK, PRN
     Route: 061
  3. ANTIBIOTICS [Concomitant]
     Indication: ACNE
     Dosage: UNK
     Route: 048
     Dates: start: 20100101

REACTIONS (3)
  - AMENORRHOEA [None]
  - ABDOMINAL PAIN [None]
  - RUPTURED ECTOPIC PREGNANCY [None]
